FAERS Safety Report 9875246 (Version 1)
Quarter: 2013Q2

REPORT INFORMATION
  Report Type: Spontaneous
  Country: US (occurrence: None)
  Receive Date: 20121031
  Receipt Date: 20121031
  Transmission Date: 20140414
  Serious: No
  Sender: FDA-Public Use
  Company Number: PHHY2011US15217

PATIENT
  Age: 37 Year
  Sex: Female
  Weight: 66.7 kg

DRUGS (3)
  1. GILENYA (FTY) CAPSULE, 0.5 MG [Suspect]
     Indication: MULTIPLE SCLEROSIS
     Dates: start: 20110210
  2. MULTIVITAMINS (ASCORBIC ACID, ERGOCALCIFEROL, FOLIC ACID, NICOTINAMIDE, PANTHENOL, RETINOL, RIBOFLAVIN, THIAMINE HYDROCHLORIDE) [Concomitant]
  3. VITAMIN D3 (COLECALCIFEROL) [Concomitant]

REACTIONS (3)
  - Muscle spasms [None]
  - Pruritus generalised [None]
  - Headache [None]
